FAERS Safety Report 20894492 (Version 2)
Quarter: 2022Q3

REPORT INFORMATION
  Report Type: Spontaneous
  Country: CA (occurrence: CA)
  Receive Date: 20220531
  Receipt Date: 20220817
  Transmission Date: 20221027
  Serious: Yes (Death, Life-Threatening, Hospitalization)
  Sender: FDA-Public Use
  Company Number: None

PATIENT
  Age: 67 Year
  Sex: Male

DRUGS (13)
  1. TACROLIMUS [Suspect]
     Active Substance: TACROLIMUS
     Indication: Renal transplant
  2. MYCOPHENOLIC ACID [Suspect]
     Active Substance: MYCOPHENOLIC ACID
     Indication: Immunosuppressant drug therapy
  3. BASILIXIMAB [Suspect]
     Active Substance: BASILIXIMAB
     Indication: Renal transplant
     Dosage: POWDER FOR SOLUTION INTRAVENOUS
  4. PREDNISONE [Suspect]
     Active Substance: PREDNISONE
     Indication: Renal transplant
  5. AMLODIPINE [Concomitant]
     Active Substance: AMLODIPINE BESYLATE
     Indication: Product used for unknown indication
  6. ATORVASTATIN CALCIUM [Concomitant]
     Active Substance: ATORVASTATIN CALCIUM
     Indication: Product used for unknown indication
  7. HYDROXYZINE [Concomitant]
     Active Substance: HYDROXYZINE HYDROCHLORIDE
     Indication: Product used for unknown indication
  8. INSULIN NOS [Concomitant]
     Active Substance: INSULIN NOS
     Indication: Product used for unknown indication
     Dosage: GLOBULES ORAL
  9. IRBESARTAN [Concomitant]
     Active Substance: IRBESARTAN
     Indication: Product used for unknown indication
  10. METFORMIN [Concomitant]
     Active Substance: METFORMIN HYDROCHLORIDE
     Indication: Product used for unknown indication
  11. TERAZOSIN [Concomitant]
     Active Substance: TERAZOSIN HYDROCHLORIDE
     Indication: Product used for unknown indication
  12. LAMIVUDINE [Concomitant]
     Active Substance: LAMIVUDINE
  13. SULFAMETHOXAZOLE [Concomitant]
     Active Substance: SULFAMETHOXAZOLE

REACTIONS (18)
  - COVID-19 [Fatal]
  - Acute respiratory distress syndrome [Fatal]
  - Atrial fibrillation [Fatal]
  - Atrioventricular block complete [Fatal]
  - Bradyarrhythmia [Fatal]
  - Cardiac arrest [Fatal]
  - Diffuse alveolar damage [Fatal]
  - Distributive shock [Fatal]
  - Heart valve incompetence [Fatal]
  - Hyperglycaemia [Fatal]
  - Hyperkalaemia [Fatal]
  - Hypotension [Fatal]
  - Lactic acidosis [Fatal]
  - Loss of consciousness [Fatal]
  - Pleural effusion [Fatal]
  - Pulmonary embolism [Fatal]
  - Pulmonary oedema [Fatal]
  - Pulseless electrical activity [Fatal]
